FAERS Safety Report 7491497-1 (Version None)
Quarter: 2011Q2

REPORT INFORMATION
  Report Type: 
  Country: None (occurrence: None)
  Receive Date: 20110519
  Receipt Date: 20110516
  Transmission Date: 20111010
  Serious: Yes (Other)
  Sender: FDA-Public Use
  Company Number: PHFR2011GB03065

PATIENT
  Sex: Female

DRUGS (1)
  1. FEMARA [Suspect]
     Route: 065

REACTIONS (2)
  - PARAESTHESIA [None]
  - COORDINATION ABNORMAL [None]
